FAERS Safety Report 23852500 (Version 1)
Quarter: 2024Q2

REPORT INFORMATION
  Report Type: Spontaneous
  Country: AU (occurrence: AU)
  Receive Date: 20240514
  Receipt Date: 20240514
  Transmission Date: 20240716
  Serious: Yes (Other)
  Sender: FDA-Public Use
  Company Number: AU-CHEPLA-2024005889

PATIENT
  Age: 48 Year
  Sex: Male

DRUGS (9)
  1. GANCICLOVIR [Suspect]
     Active Substance: GANCICLOVIR
     Indication: Product used for unknown indication
  2. HYDROCORTISONE [Suspect]
     Active Substance: HYDROCORTISONE
     Indication: Product used for unknown indication
  3. TOCILIZUMAB [Suspect]
     Active Substance: TOCILIZUMAB
     Indication: Product used for unknown indication
  4. DEXAMETHASONE [Suspect]
     Active Substance: DEXAMETHASONE
     Indication: Product used for unknown indication
  5. CEFEPIME HYDROCHLORIDE [Concomitant]
     Active Substance: CEFEPIME HYDROCHLORIDE
  6. Piperacillin Sodium/Tazobactum [Concomitant]
  7. MEROPENEM [Concomitant]
     Active Substance: MEROPENEM
  8. REMDESIVIR [Concomitant]
     Active Substance: REMDESIVIR
  9. VANCOMYCIN [Concomitant]
     Active Substance: VANCOMYCIN

REACTIONS (9)
  - Aspergillus infection [Unknown]
  - Bronchopleural fistula [Unknown]
  - Bronchopulmonary aspergillosis [Unknown]
  - Enterococcal infection [Unknown]
  - Pneumonia cytomegaloviral [Unknown]
  - Pulmonary haemorrhage [Unknown]
  - Pulmonary necrosis [Unknown]
  - Stenotrophomonas infection [Unknown]
  - Klebsiella infection [Unknown]
